FAERS Safety Report 4706876-2 (Version None)
Quarter: 2005Q3

REPORT INFORMATION
  Report Type: 
  Country: None (occurrence: None)
  Receive Date: 20050706
  Receipt Date: 20020516
  Transmission Date: 20060218
  Serious: Yes (Disabling)
  Sender: FDA-Public Use
  Company Number: US-MERCK-0205USA02044

PATIENT
  Age: 36 Year
  Sex: Male
  Weight: 91 kg

DRUGS (7)
  1. VIOXX [Suspect]
     Indication: UPPER LIMB FRACTURE
     Route: 048
     Dates: start: 20010309, end: 20010101
  2. VIOXX [Suspect]
     Route: 048
     Dates: start: 20000101, end: 20000301
  3. VIOXX [Suspect]
     Route: 048
     Dates: start: 20000301, end: 20000325
  4. VIOXX [Suspect]
     Indication: INFLAMMATION
     Route: 048
     Dates: start: 20010309, end: 20010101
  5. VIOXX [Suspect]
     Route: 048
     Dates: start: 20000101, end: 20000301
  6. VIOXX [Suspect]
     Route: 048
     Dates: start: 20000301, end: 20000325
  7. COUMADIN [Concomitant]
     Route: 065
     Dates: start: 19910103

REACTIONS (34)
  - ABDOMINAL PAIN [None]
  - ARTHROSCOPY [None]
  - ASTHENIA [None]
  - BACK INJURY [None]
  - BACK PAIN [None]
  - CHEST PAIN [None]
  - CONSTIPATION [None]
  - DIVERTICULUM [None]
  - DIZZINESS [None]
  - ECCHYMOSIS [None]
  - EMOTIONAL DISTRESS [None]
  - FACIAL PAIN [None]
  - HYPERTENSION [None]
  - HYPOAESTHESIA [None]
  - INFLAMMATION [None]
  - INTERVERTEBRAL DISC DISORDER [None]
  - LIGAMENT SPRAIN [None]
  - LIMB INJURY [None]
  - LOOSE BODY IN JOINT [None]
  - MONOPARESIS [None]
  - MUSCULOSKELETAL CHEST PAIN [None]
  - NAUSEA [None]
  - NON-CARDIAC CHEST PAIN [None]
  - OEDEMA PERIPHERAL [None]
  - PAIN [None]
  - PAIN IN EXTREMITY [None]
  - PERIPHERAL EMBOLISM [None]
  - PYREXIA [None]
  - RENAL FAILURE [None]
  - RHEUMATOID ARTHRITIS [None]
  - SCIATIC NERVE INJURY [None]
  - STRESS [None]
  - TESTICULAR CYST [None]
  - URINARY TRACT INFECTION [None]
